FAERS Safety Report 9233493 (Version 3)
Quarter: 2013Q2

REPORT INFORMATION
  Report Type: Spontaneous
  Country: JP (occurrence: JP)
  Receive Date: 20130416
  Receipt Date: 20130618
  Transmission Date: 20140414
  Serious: Yes (Hospitalization, Other)
  Sender: FDA-Public Use
  Company Number: JP-UCBSA-083054

PATIENT
  Age: 80 Year
  Sex: Male

DRUGS (4)
  1. NEUPRO [Suspect]
     Indication: PARKINSONISM
     Dosage: DAILY DOSE : 2.25 MG
     Route: 061
     Dates: start: 20130326, end: 20130329
  2. TAMSULOSIN HYDROCHLORIDE [Concomitant]
     Dosage: DAILY DOSE-0.2 MG
     Dates: start: 20130326, end: 20130329
  3. TRAZODONE HYDROCHLORIDE [Concomitant]
     Dosage: DAILY DOSE- 50 MG
     Dates: start: 20130326, end: 20130329
  4. DIAZEPAM [Concomitant]
     Dosage: 10 MG/DAY
     Dates: start: 201303

REACTIONS (3)
  - Muscle spasms [Recovered/Resolved]
  - Facial spasm [Recovered/Resolved]
  - Atrial fibrillation [Recovering/Resolving]
